FAERS Safety Report 7808679-9 (Version None)
Quarter: 2011Q4

REPORT INFORMATION
  Report Type: 
  Country: None (occurrence: None)
  Receive Date: 20111012
  Receipt Date: 20111004
  Transmission Date: 20120403
  Serious: Yes (Other)
  Sender: FDA-Public Use
  Company Number: JP-ASTELLAS-2011JP007112

PATIENT
  Age: 28 Year
  Sex: Female

DRUGS (3)
  1. FOSCARNET [Concomitant]
     Indication: CYTOMEGALOVIRUS ENTEROCOLITIS
     Route: 065
  2. CANDESARTAN CILEXETIL [Concomitant]
     Indication: RENAL IMPAIRMENT
     Dosage: 4 MG, UNKNOWN/D
     Route: 048
  3. PROGRAF [Suspect]
     Indication: IMMUNOSUPPRESSANT DRUG THERAPY
     Route: 048

REACTIONS (1)
  - MATERNAL EXPOSURE DURING PREGNANCY [None]
